FAERS Safety Report 8515486-0 (Version None)
Quarter: 2012Q3

REPORT INFORMATION
  Report Type: 
  Country: None (occurrence: None)
  Receive Date: 20120717
  Receipt Date: 20120707
  Transmission Date: 20120928
  Serious: No
  Sender: FDA-Public Use
  Company Number: US-VERTEX PHARMACEUTICALS INC.-AE-2012-009127

PATIENT
  Sex: Male
  Weight: 127.27 kg

DRUGS (8)
  1. LISINOPRIL [Concomitant]
  2. CALCIUM [Concomitant]
  3. INCIVEK [Suspect]
     Indication: HEPATITIS C
     Route: 048
     Dates: start: 20111201, end: 20120301
  4. PEGASYS [Concomitant]
     Indication: HEPATITIS C
     Route: 058
     Dates: start: 20111201
  5. GLIMEPIRIDE [Concomitant]
  6. LEXAPRO [Concomitant]
  7. RIBAVIRIN [Concomitant]
     Indication: HEPATITIS C
     Route: 048
     Dates: start: 20111201
  8. BYETTA [Concomitant]

REACTIONS (5)
  - COUGH [None]
  - FATIGUE [None]
  - ANAEMIA [None]
  - WHITE BLOOD CELL COUNT DECREASED [None]
  - PRURITUS [None]
